FAERS Safety Report 21595003 (Version 3)
Quarter: 2022Q4

REPORT INFORMATION
  Report Type: Spontaneous
  Country: US (occurrence: US)
  Receive Date: 20221115
  Receipt Date: 20221225
  Transmission Date: 20230112
  Serious: No
  Sender: FDA-Public Use
  Company Number: US-JNJFOC-20221125690

PATIENT
  Age: 56 Year
  Sex: Female
  Weight: 95.340 kg

DRUGS (2)
  1. XARELTO [Suspect]
     Active Substance: RIVAROXABAN
     Indication: Thrombosis
     Route: 048
     Dates: start: 2015
  2. XARELTO [Suspect]
     Active Substance: RIVAROXABAN
     Route: 048

REACTIONS (3)
  - Product dose omission issue [Unknown]
  - Product contamination physical [Unknown]
  - Migraine [Unknown]

NARRATIVE: CASE EVENT DATE: 20221109
